FAERS Safety Report 25642354 (Version 2)
Quarter: 2025Q3

REPORT INFORMATION
  Report Type: Spontaneous
  Country: US (occurrence: US)
  Receive Date: 20250805
  Receipt Date: 20250918
  Transmission Date: 20251020
  Serious: No
  Sender: TOLMAR
  Company Number: US-Tolmar-TLM-2025-04510

PATIENT

DRUGS (2)
  1. FENSOLVI [Suspect]
     Active Substance: LEUPROLIDE ACETATE
     Indication: Precocious puberty
     Route: 065
     Dates: start: 20250708
  2. DEVICE [Suspect]
     Active Substance: DEVICE
     Indication: Precocious puberty

REACTIONS (3)
  - Intercepted product preparation error [Unknown]
  - Product dose omission in error [Unknown]
  - Product physical consistency issue [Unknown]

NARRATIVE: CASE EVENT DATE: 20250708
